FAERS Safety Report 17721593 (Version 3)
Quarter: 2020Q2

REPORT INFORMATION
  Report Type: Report from Study
  Country: US (occurrence: US)
  Receive Date: 20200429
  Receipt Date: 20200605
  Transmission Date: 20200714
  Serious: No
  Sender: FDA-Public Use
  Company Number: NVSC2020US112742

PATIENT
  Sex: Female

DRUGS (3)
  1. PIQRAY [Suspect]
     Active Substance: ALPELISIB
     Route: 048
  2. PIQRAY [Suspect]
     Active Substance: ALPELISIB
     Indication: PRODUCT USED FOR UNKNOWN INDICATION
     Dosage: 300 MG PACK(150MG TABS )
     Route: 048
  3. AMLODIPINE BESILAAT SANDOZ [Concomitant]
     Indication: PRODUCT USED FOR UNKNOWN INDICATION
     Dosage: UNK
     Route: 065

REACTIONS (7)
  - Blood glucose increased [Unknown]
  - Nail discolouration [Unknown]
  - Fatigue [Unknown]
  - Blood pressure decreased [Unknown]
  - Back pain [Unknown]
  - Nausea [Recovering/Resolving]
  - Dry skin [Unknown]
